FAERS Safety Report 24719246 (Version 3)
Quarter: 2025Q3

REPORT INFORMATION
  Report Type: Spontaneous
  Country: JP (occurrence: JP)
  Receive Date: 20241210
  Receipt Date: 20250809
  Transmission Date: 20251020
  Serious: Yes (Other)
  Sender: ALEXION PHARMACEUTICALS
  Company Number: JP-ASTRAZENECA-240138173_063610_P_1

PATIENT
  Age: 70 Year
  Sex: Male

DRUGS (1)
  1. LOKELMA [Suspect]
     Active Substance: SODIUM ZIRCONIUM CYCLOSILICATE
     Indication: Hyperkalaemia
     Dates: start: 20240414, end: 20240419

REACTIONS (1)
  - Obstruction gastric [Recovering/Resolving]

NARRATIVE: CASE EVENT DATE: 20240415
